FAERS Safety Report 14744553 (Version 1)
Quarter: 2018Q2

REPORT INFORMATION
  Report Type: Spontaneous
  Country: US (occurrence: US)
  Receive Date: 20180411
  Receipt Date: 20180411
  Transmission Date: 20180711
  Serious: Yes (Hospitalization)
  Sender: FDA-Public Use
  Company Number: US-CIPLA LTD.-2018US14880

PATIENT

DRUGS (6)
  1. VALACYCLOVIR [Suspect]
     Active Substance: VALACYCLOVIR HYDROCHLORIDE
     Dosage: UNK
     Route: 048
  2. GANCICLOVIR. [Suspect]
     Active Substance: GANCICLOVIR
     Indication: RETINITIS
     Dosage: UNK
  3. GANCICLOVIR. [Suspect]
     Active Substance: GANCICLOVIR
     Dosage: UNK
  4. ACYCLOVIR. [Suspect]
     Active Substance: ACYCLOVIR
     Indication: RETINITIS
     Dosage: UNK
     Route: 042
  5. ACYCLOVIR. [Suspect]
     Active Substance: ACYCLOVIR
     Dosage: UNK
     Route: 042
  6. VALACYCLOVIR [Suspect]
     Active Substance: VALACYCLOVIR HYDROCHLORIDE
     Indication: PRODUCT USED FOR UNKNOWN INDICATION
     Dosage: 2 G, UNK
     Route: 048

REACTIONS (1)
  - Condition aggravated [Unknown]
